FAERS Safety Report 7761635-1 (Version None)
Quarter: 2011Q3

REPORT INFORMATION
  Report Type: 
  Country: None (occurrence: None)
  Receive Date: 20110920
  Receipt Date: 20110915
  Transmission Date: 20111222
  Serious: Yes (Death)
  Sender: FDA-Public Use
  Company Number: US-ASTELLAS-2011US003596

PATIENT
  Sex: Female
  Weight: 49 kg

DRUGS (1)
  1. ERLOTINIB HYDROCHLORIDE [Suspect]
     Indication: PANCREATIC CARCINOMA
     Dosage: 150 MG, UID/QD
     Route: 048
     Dates: start: 20110513, end: 20110725

REACTIONS (4)
  - RASH [None]
  - PANCREATIC CARCINOMA [None]
  - ACUTE RESPIRATORY FAILURE [None]
  - DIARRHOEA [None]
